FAERS Safety Report 25155067 (Version 1)
Quarter: 2025Q2

REPORT INFORMATION
  Report Type: Spontaneous
  Country: PT (occurrence: PT)
  Receive Date: 20250403
  Receipt Date: 20250403
  Transmission Date: 20250717
  Serious: Yes (Death)
  Sender: MERCK SHARP & DOHME LLC
  Company Number: None

PATIENT
  Age: 60 Year
  Sex: Female

DRUGS (3)
  1. KEYTRUDA [Suspect]
     Active Substance: PEMBROLIZUMAB
     Indication: Triple negative breast cancer
     Dosage: 200 MG 21/21 DAYS
     Route: 042
     Dates: start: 20250225, end: 20250225
  2. CYCLOPHOSPHAMIDE [Suspect]
     Active Substance: CYCLOPHOSPHAMIDE
     Indication: Triple negative breast cancer
     Route: 042
     Dates: start: 20250225, end: 20250225
  3. DOXORUBICIN HYDROCHLORIDE [Suspect]
     Active Substance: DOXORUBICIN HYDROCHLORIDE
     Indication: Triple negative breast cancer
     Dates: start: 20250225, end: 20250225

REACTIONS (4)
  - Thrombocytopenia [Fatal]
  - Febrile neutropenia [Fatal]
  - Septic shock [Fatal]
  - Leukopenia [Fatal]

NARRATIVE: CASE EVENT DATE: 20250311
